FAERS Safety Report 8185896-2 (Version None)
Quarter: 2012Q1

REPORT INFORMATION
  Report Type: 
  Country: None (occurrence: None)
  Receive Date: 20120305
  Receipt Date: 20120228
  Transmission Date: 20120608
  Serious: Yes (Life-Threatening, Hospitalization)
  Sender: FDA-Public Use
  Company Number: NO-ASTRAZENECA-2009SE00575

PATIENT
  Age: 18 Year
  Sex: Male
  Weight: 139 kg

DRUGS (16)
  1. SEROQUEL [Suspect]
     Route: 048
     Dates: start: 20060810, end: 20060811
  2. CONCERTA [Suspect]
     Route: 048
     Dates: start: 20060810, end: 20060811
  3. CONCERTA [Suspect]
     Route: 048
     Dates: start: 20050601
  4. SEROQUEL [Suspect]
     Route: 048
     Dates: start: 20050613, end: 20050822
  5. SEROQUEL [Suspect]
     Route: 048
     Dates: end: 20050612
  6. SEROQUEL [Suspect]
     Route: 048
     Dates: start: 20060209, end: 20060803
  7. SEROQUEL [Suspect]
     Route: 048
     Dates: start: 20060810, end: 20060811
  8. SEROQUEL [Suspect]
     Route: 048
     Dates: start: 20050613, end: 20050822
  9. CONCERTA [Suspect]
     Route: 048
     Dates: start: 20051031
  10. SEROQUEL [Suspect]
     Route: 048
     Dates: start: 20060804
  11. SEROQUEL [Suspect]
     Route: 048
     Dates: start: 20060804
  12. SEROQUEL [Suspect]
     Indication: ATTENTION DEFICIT/HYPERACTIVITY DISORDER
     Route: 048
     Dates: start: 20050401
  13. SEROQUEL [Suspect]
     Indication: MENTAL DISORDER
     Route: 048
     Dates: start: 20050401
  14. CONCERTA [Suspect]
     Indication: ATTENTION DEFICIT/HYPERACTIVITY DISORDER
     Route: 048
     Dates: start: 20051003, end: 20051030
  15. SEROQUEL [Suspect]
     Route: 048
     Dates: end: 20050612
  16. SEROQUEL [Suspect]
     Route: 048
     Dates: start: 20060209, end: 20060803

REACTIONS (4)
  - HEPATIC FAILURE [None]
  - CARDIAC FAILURE [None]
  - RENAL FAILURE [None]
  - CONGESTIVE CARDIOMYOPATHY [None]
